FAERS Safety Report 12886464 (Version 1)
Quarter: 2016Q4

REPORT INFORMATION
  Report Type: Spontaneous
  Country: US (occurrence: US)
  Receive Date: 20161026
  Receipt Date: 20161026
  Transmission Date: 20170207
  Serious: Yes (Hospitalization)
  Sender: FDA-Public Use
  Company Number: US-CELGENEUS-USA-2016105964

PATIENT
  Age: 90 Year
  Sex: Female

DRUGS (1)
  1. REVLIMID [Suspect]
     Active Substance: LENALIDOMIDE
     Indication: BLOOD DISORDER
     Dosage: 10 MILLIGRAM
     Route: 048
     Dates: start: 20160921, end: 20161015

REACTIONS (2)
  - Cerebrovascular accident [Unknown]
  - Pneumonia [Unknown]

NARRATIVE: CASE EVENT DATE: 20161015
